FAERS Safety Report 5837390-9 (Version None)
Quarter: 2008Q3

REPORT INFORMATION
  Report Type: 
  Country: None (occurrence: None)
  Receive Date: 20080807
  Receipt Date: 20080730
  Transmission Date: 20090109
  Serious: Yes (Hospitalization)
  Sender: FDA-Public Use
  Company Number: US-GILEAD-2008-0017561

PATIENT
  Sex: Male
  Weight: 60.836 kg

DRUGS (8)
  1. AMBRISENTAN [Suspect]
     Dates: start: 20080429
  2. AMBRISENTAN [Suspect]
     Dates: start: 20071108, end: 20080428
  3. HYDROCHLOROTHIAZIDE [Concomitant]
     Dates: start: 19920101, end: 20080722
  4. ASPIRIN [Concomitant]
     Dates: start: 20040101
  5. LIPITOR [Concomitant]
     Dates: start: 20040101
  6. MECLIZINE [Concomitant]
     Dates: start: 20071102
  7. METAMUCIL [Concomitant]
     Dates: start: 20070101
  8. OXYGEN [Concomitant]
     Dates: start: 20040921

REACTIONS (2)
  - ATRIAL FLUTTER [None]
  - DIZZINESS [None]
